FAERS Safety Report 11822497 (Version 1)
Quarter: 2015Q4

REPORT INFORMATION
  Report Type: Spontaneous
  Country: US (occurrence: US)
  Receive Date: 20151210
  Receipt Date: 20151210
  Transmission Date: 20160305
  Serious: Yes (Other)
  Sender: FDA-Public Use
  Company Number: US-JNJFOC-20150602923

PATIENT
  Sex: Male

DRUGS (13)
  1. PROTONIX [Concomitant]
     Active Substance: PANTOPRAZOLE SODIUM
  2. KLOR-CON [Concomitant]
     Active Substance: POTASSIUM CHLORIDE
  3. IMBRUVICA [Suspect]
     Active Substance: IBRUTINIB
     Indication: WALDENSTROM^S MACROGLOBULINAEMIA
     Route: 048
     Dates: start: 20140624
  4. LOPRESSOR [Concomitant]
     Active Substance: METOPROLOL TARTRATE
  5. DOXEPIN [Concomitant]
     Active Substance: DOXEPIN
  6. LASIX [Concomitant]
     Active Substance: FUROSEMIDE
  7. DIOVAN [Concomitant]
     Active Substance: VALSARTAN
  8. PREDNISONE. [Concomitant]
     Active Substance: PREDNISONE
  9. ZINC [Concomitant]
     Active Substance: ZINC\ZINC CHLORIDE
  10. KEPPRA [Concomitant]
     Active Substance: LEVETIRACETAM
  11. ALDACTONE [Concomitant]
     Active Substance: SPIRONOLACTONE
  12. VISTARIL [Concomitant]
     Active Substance: HYDROXYZINE PAMOATE
  13. XARELTO [Concomitant]
     Active Substance: RIVAROXABAN

REACTIONS (1)
  - Arthropathy [Unknown]

NARRATIVE: CASE EVENT DATE: 2015
